FAERS Safety Report 16915127 (Version 2)
Quarter: 2019Q4

REPORT INFORMATION
  Report Type: Spontaneous
  Country: US (occurrence: US)
  Receive Date: 20191014
  Receipt Date: 20191111
  Transmission Date: 20200122
  Serious: Yes (Other)
  Sender: FDA-Public Use
  Company Number: US-PFIZER INC-2017230440

PATIENT
  Age: 7 Year
  Sex: Male

DRUGS (2)
  1. GENOTROPIN MQ [Suspect]
     Active Substance: SOMATROPIN
     Dosage: 0.2 MG, 1X/DAY (ONCE AT NIGHTTIME)
  2. GENOTROPIN MQ [Suspect]
     Active Substance: SOMATROPIN
     Indication: BLOOD GROWTH HORMONE
     Dosage: 0.6 MG, 1X/DAY (NIGHTTIME)

REACTIONS (1)
  - Septo-optic dysplasia [Unknown]
